FAERS Safety Report 9729685 (Version 1)
Quarter: 2013Q4

REPORT INFORMATION
  Report Type: Spontaneous
  Country: US (occurrence: US)
  Receive Date: 20131204
  Receipt Date: 20131204
  Transmission Date: 20140711
  Serious: No
  Sender: FDA-Public Use
  Company Number: US-GILEAD-2009-0020955

PATIENT
  Age: 75 Year
  Sex: Female

DRUGS (4)
  1. LETAIRIS [Suspect]
     Indication: PULMONARY ARTERIAL HYPERTENSION
     Route: 048
     Dates: start: 20090112
  2. TOPROL XL [Concomitant]
  3. COUMADIN [Concomitant]
  4. FUROSEMIDE [Concomitant]

REACTIONS (2)
  - Pulmonary arterial hypertension [Unknown]
  - Drug ineffective [Unknown]
